FAERS Safety Report 10336343 (Version 1)
Quarter: 2014Q3

REPORT INFORMATION
  Report Type: Spontaneous
  Country: US (occurrence: US)
  Receive Date: 20140723
  Receipt Date: 20140723
  Transmission Date: 20150326
  Serious: No
  Sender: FDA-Public Use
  Company Number: US-BRISTOL-MYERS SQUIBB COMPANY-20140646

PATIENT
  Age: 88 Year
  Sex: Male
  Weight: 90.7 kg

DRUGS (19)
  1. COMBIVENT [Concomitant]
     Active Substance: ALBUTEROL SULFATE\IPRATROPIUM BROMIDE
     Indication: CHRONIC OBSTRUCTIVE PULMONARY DISEASE
     Dosage: 1DF= INHALE 2-4 TIMES/DAY ?COMBIVENT RESPIMAT
     Route: 055
  2. CLOBETASOL [Concomitant]
     Active Substance: CLOBETASOL
     Indication: RASH
  3. CRESTOR [Concomitant]
     Active Substance: ROSUVASTATIN CALCIUM
  4. FUROSEMIDE. [Concomitant]
     Active Substance: FUROSEMIDE
     Dosage: 60 MG
  5. VITAMIN B [Concomitant]
     Active Substance: VITAMIN B
  6. COQ10 [Concomitant]
     Active Substance: UBIDECARENONE
  7. VITAMIN D [Concomitant]
     Active Substance: CHOLECALCIFEROL
  8. COUMADIN [Suspect]
     Active Substance: WARFARIN SODIUM
     Indication: ATRIAL FIBRILLATION
     Dosage: DOSES: 1MG, 2MG AND 2.5MG.?REDUCED TO 3 MG
  9. ACYCLOVIR. [Concomitant]
     Active Substance: ACYCLOVIR
  10. LUTEIN [Concomitant]
     Active Substance: LUTEIN
  11. DIGOXIN. [Concomitant]
     Active Substance: DIGOXIN
  12. LOTEMAX [Concomitant]
     Active Substance: LOTEPREDNOL ETABONATE
     Dosage: LOTEMAX EYE DROPS
  13. HYDROCORTISONE. [Concomitant]
     Active Substance: HYDROCORTISONE
  14. ARICEPT [Concomitant]
     Active Substance: DONEPEZIL HYDROCHLORIDE
  15. POTASSIUM [Concomitant]
     Active Substance: POTASSIUM
  16. FLOMAX [Concomitant]
     Active Substance: TAMSULOSIN HYDROCHLORIDE
  17. MULTIVITAMIN [Concomitant]
     Active Substance: VITAMINS
  18. CICLOPIROX. [Concomitant]
     Active Substance: CICLOPIROX
     Dosage: CREAM
  19. TRIAMCINOLONE [Concomitant]
     Active Substance: TRIAMCINOLONE
     Indication: DERMATITIS PSORIASIFORM

REACTIONS (1)
  - International normalised ratio fluctuation [Unknown]
